FAERS Safety Report 12708281 (Version 1)
Quarter: 2016Q3

REPORT INFORMATION
  Report Type: Spontaneous
  Country: US (occurrence: US)
  Receive Date: 20160901
  Receipt Date: 20160901
  Transmission Date: 20161109
  Serious: Yes (Other)
  Sender: FDA-Public Use
  Company Number: US-BRISTOL-MYERS SQUIBB COMPANY-BMS-2016-071004

PATIENT
  Age: 72 Year
  Sex: Male
  Weight: 101.1 kg

DRUGS (1)
  1. ELIQUIS [Suspect]
     Active Substance: APIXABAN
     Indication: CEREBROVASCULAR ACCIDENT PROPHYLAXIS
     Dosage: 2.5 MG, BID
     Route: 048

REACTIONS (4)
  - Bacterial infection [Unknown]
  - Prescribed underdose [Unknown]
  - Spinal operation [Unknown]
  - Incision site haemorrhage [Unknown]

NARRATIVE: CASE EVENT DATE: 201604
